FAERS Safety Report 12870606 (Version 1)
Quarter: 2016Q4

REPORT INFORMATION
  Report Type: Spontaneous
  Country: US (occurrence: US)
  Receive Date: 20161021
  Receipt Date: 20161021
  Transmission Date: 20170207
  Serious: Yes (Life-Threatening, Hospitalization, Disabling, Other)
  Sender: FDA-Public Use
  Company Number: None

PATIENT
  Age: 70 Year
  Sex: Female
  Weight: 103.51 kg

DRUGS (10)
  1. TOPAMAX [Concomitant]
     Active Substance: TOPIRAMATE
  2. METFORMIN HCL 500MG PHARMA USA INS. [Suspect]
     Active Substance: METFORMIN HYDROCHLORIDE
     Indication: DIABETES MELLITUS
     Route: 048
     Dates: start: 20090607, end: 201606
  3. LANTUS [Concomitant]
     Active Substance: INSULIN GLARGINE
  4. VITAMINS [Concomitant]
     Active Substance: VITAMINS
  5. AMOXICILLIN/CLAVULANATE [Concomitant]
     Active Substance: AMOXICILLIN\CLAVULANATE POTASSIUM
  6. ASPRIN [Concomitant]
     Active Substance: ASPIRIN
  7. MOUTHWASH [Concomitant]
  8. TOOTHPASTE [Concomitant]
     Active Substance: UNSPECIFIED INGREDIENT
  9. LANTANOPROST [Concomitant]
     Active Substance: LATANOPROST
  10. LOTION [Concomitant]
     Active Substance: COSMETICS

REACTIONS (9)
  - Eye haemorrhage [None]
  - Kidney infection [None]
  - Thrombosis [None]
  - Unevaluable event [None]
  - Intestinal haemorrhage [None]
  - Gastric disorder [None]
  - Eye disorder [None]
  - Cerebrovascular accident [None]
  - Urinary incontinence [None]
